FAERS Safety Report 21201336 (Version 4)
Quarter: 2022Q3

REPORT INFORMATION
  Report Type: Report from Study
  Country: NL (occurrence: NL)
  Receive Date: 20220811
  Receipt Date: 20220920
  Transmission Date: 20221027
  Serious: Yes (Other)
  Sender: FDA-Public Use
  Company Number: NL-JNJFOC-20220810542

PATIENT
  Age: 9 Decade
  Sex: Female

DRUGS (3)
  1. DARATUMUMAB [Suspect]
     Active Substance: DARATUMUMAB
     Indication: Plasma cell myeloma
     Route: 041
     Dates: start: 20180620, end: 20181108
  2. DEXAMETHASONE [Suspect]
     Active Substance: DEXAMETHASONE
     Indication: Plasma cell myeloma
     Route: 065
     Dates: start: 20180820, end: 20181108
  3. IXAZOMIB [Suspect]
     Active Substance: IXAZOMIB
     Indication: Plasma cell myeloma
     Route: 065
     Dates: start: 20180620, end: 20181108

REACTIONS (2)
  - Colorectal adenocarcinoma [Recovered/Resolved]
  - Lung adenocarcinoma [Recovered/Resolved]

NARRATIVE: CASE EVENT DATE: 20220405
